FAERS Safety Report 9320932 (Version 2)
Quarter: 2013Q2

REPORT INFORMATION
  Report Type: Spontaneous
  Country: US (occurrence: US)
  Receive Date: 20130531
  Receipt Date: 20130620
  Transmission Date: 20140414
  Serious: Yes (Hospitalization, Other)
  Sender: FDA-Public Use
  Company Number: PHEH2013US011744

PATIENT
  Sex: Male

DRUGS (2)
  1. TRILEPTAL [Suspect]
     Dosage: 600 MG, BID
  2. ASPIRIN [Concomitant]
     Dosage: UNK UKN, UNK

REACTIONS (2)
  - Staphylococcal infection [Unknown]
  - Dementia [Unknown]
